FAERS Safety Report 24885262 (Version 1)
Quarter: 2025Q1

REPORT INFORMATION
  Report Type: Spontaneous
  Country: US (occurrence: US)
  Receive Date: 20250124
  Receipt Date: 20250124
  Transmission Date: 20250408
  Serious: No
  Sender: ELITE
  Company Number: US-ELITEPHARMA-2024ELSPO00013

PATIENT

DRUGS (1)
  1. DEXTROAMPHETAMINE SACCHARATE, AMPHETAMINE ASPARTATE, DEXTROAMPHETAMINE [Suspect]
     Active Substance: AMPHETAMINE ASPARTATE\AMPHETAMINE SULFATE\DEXTROAMPHETAMINE SACCHARATE\DEXTROAMPHETAMINE SULFATE
     Indication: Attention deficit hyperactivity disorder
     Route: 065

REACTIONS (6)
  - Ocular hyperaemia [Unknown]
  - Impaired work ability [Unknown]
  - Pruritus [Unknown]
  - Drug ineffective [Unknown]
  - Rash [Unknown]
  - Dry mouth [Unknown]
